FAERS Safety Report 12384493 (Version 2)
Quarter: 2016Q3

REPORT INFORMATION
  Report Type: Spontaneous
  Country: ES (occurrence: ES)
  Receive Date: 20160519
  Receipt Date: 20160723
  Transmission Date: 20161109
  Serious: Yes (Hospitalization)
  Sender: FDA-Public Use
  Company Number: ES-INVENTIA-000114

PATIENT
  Age: 77 Year
  Sex: Female

DRUGS (3)
  1. OLANZAPINE. [Interacting]
     Active Substance: OLANZAPINE
     Indication: BIPOLAR DISORDER
  2. PHENELZINE/PHENELZINE SULFATE [Interacting]
     Active Substance: PHENELZINE SULFATE
     Indication: BIPOLAR DISORDER
  3. DULOXETINE. [Suspect]
     Active Substance: DULOXETINE
     Indication: BIPOLAR DISORDER

REACTIONS (3)
  - Serotonin syndrome [Recovered/Resolved]
  - Urinary tract infection [None]
  - Drug interaction [Unknown]
